FAERS Safety Report 16131502 (Version 1)
Quarter: 2019Q1

REPORT INFORMATION
  Report Type: Spontaneous
  Country: US (occurrence: US)
  Receive Date: 20190225
  Receipt Date: 20190225
  Transmission Date: 20190418
  Serious: No
  Sender: FDA-Public Use
  Company Number: None

PATIENT
  Age: 85 Year
  Sex: Male

DRUGS (1)
  1. CAPECITABINE TAB 500MG [Suspect]
     Active Substance: CAPECITABINE
     Route: 048
     Dates: start: 201901

REACTIONS (4)
  - Stomatitis [None]
  - Hyperaesthesia [None]
  - Paraesthesia [None]
  - Hypoaesthesia [None]

NARRATIVE: CASE EVENT DATE: 20190225
